FAERS Safety Report 12463795 (Version 2)
Quarter: 2016Q2

REPORT INFORMATION
  Report Type: Spontaneous
  Country: CN (occurrence: CN)
  Receive Date: 20160614
  Receipt Date: 20160621
  Transmission Date: 20160815
  Serious: Yes (Death, Hospitalization)
  Sender: FDA-Public Use
  Company Number: CN-ASTRAZENECA-2016SE00079

PATIENT
  Age: 14615 Day
  Sex: Female
  Weight: 55 kg

DRUGS (13)
  1. OXYCODONE HYDROCHLORIDE. [Suspect]
     Active Substance: OXYCODONE HYDROCHLORIDE
     Indication: PAIN
     Route: 048
     Dates: start: 20150831
  2. VOLITINIB [Suspect]
     Active Substance: SAVOLITINIB
     Indication: NON-SMALL CELL LUNG CANCER
     Route: 048
     Dates: start: 20151123, end: 20151213
  3. VOLITINIB [Suspect]
     Active Substance: SAVOLITINIB
     Indication: NON-SMALL CELL LUNG CANCER
     Route: 048
     Dates: start: 20151128, end: 20151213
  4. IRESSA [Suspect]
     Active Substance: GEFITINIB
     Indication: NON-SMALL CELL LUNG CANCER
     Route: 048
     Dates: start: 20151123, end: 20151123
  5. IRESSA [Suspect]
     Active Substance: GEFITINIB
     Indication: NON-SMALL CELL LUNG CANCER
     Route: 048
     Dates: start: 20151213, end: 20151213
  6. IRESSA [Suspect]
     Active Substance: GEFITINIB
     Indication: NON-SMALL CELL LUNG CANCER
     Route: 048
     Dates: start: 20151228, end: 20151228
  7. VOLITINIB [Suspect]
     Active Substance: SAVOLITINIB
     Indication: NON-SMALL CELL LUNG CANCER
     Route: 048
     Dates: start: 20151125, end: 20151213
  8. VOLITINIB [Suspect]
     Active Substance: SAVOLITINIB
     Indication: NON-SMALL CELL LUNG CANCER
     Route: 048
     Dates: start: 20151129, end: 20151213
  9. VOLITINIB [Suspect]
     Active Substance: SAVOLITINIB
     Indication: NON-SMALL CELL LUNG CANCER
     Route: 048
     Dates: start: 20151228, end: 20151228
  10. VOLITINIB [Suspect]
     Active Substance: SAVOLITINIB
     Indication: NON-SMALL CELL LUNG CANCER
     Route: 048
     Dates: start: 20151126, end: 20151213
  11. VOLITINIB [Suspect]
     Active Substance: SAVOLITINIB
     Indication: NON-SMALL CELL LUNG CANCER
     Route: 048
     Dates: start: 20151213, end: 20151213
  12. VOLITINIB [Suspect]
     Active Substance: SAVOLITINIB
     Indication: NON-SMALL CELL LUNG CANCER
     Route: 048
     Dates: start: 20151214, end: 20151228
  13. IRESSA [Suspect]
     Active Substance: GEFITINIB
     Indication: NON-SMALL CELL LUNG CANCER
     Route: 048
     Dates: start: 20151214, end: 20151228

REACTIONS (2)
  - Wheezing [Recovered/Resolved]
  - Lung adenocarcinoma [Fatal]

NARRATIVE: CASE EVENT DATE: 20151224
